FAERS Safety Report 8205213-9 (Version None)
Quarter: 2012Q1

REPORT INFORMATION
  Report Type: 
  Country: None (occurrence: None)
  Receive Date: 20120309
  Receipt Date: 20120228
  Transmission Date: 20120608
  Serious: Yes (Hospitalization)
  Sender: FDA-Public Use
  Company Number: TPA2012A01123

PATIENT
  Age: 57 Year
  Sex: Female
  Weight: 117.4816 kg

DRUGS (2)
  1. METFORMIN HCL [Concomitant]
  2. ACTOS [Suspect]
     Indication: TYPE 2 DIABETES MELLITUS
     Dosage: 45 MG, 1 IN 1 D, PER ORAL
     Route: 048
     Dates: end: 20110101

REACTIONS (3)
  - BLADDER CANCER [None]
  - ATRIOVENTRICULAR BLOCK [None]
  - POLLAKIURIA [None]
